FAERS Safety Report 6805404-5 (Version None)
Quarter: 2010Q2

REPORT INFORMATION
  Report Type: 
  Country: None (occurrence: None)
  Receive Date: 20100628
  Receipt Date: 20071109
  Transmission Date: 20101027
  Serious: No
  Sender: FDA-Public Use
  Company Number: US-PFIZER INC-2007095158

PATIENT

DRUGS (4)
  1. GEODON [Suspect]
  2. LEXAPRO [Concomitant]
  3. CYMBALTA [Concomitant]
  4. ULTRAM [Concomitant]

REACTIONS (1)
  - DYSTONIA [None]
